FAERS Safety Report 7767147-3 (Version None)
Quarter: 2011Q3

REPORT INFORMATION
  Report Type: 
  Country: None (occurrence: None)
  Receive Date: 20110922
  Receipt Date: 20110405
  Transmission Date: 20111222
  Serious: No
  Sender: FDA-Public Use
  Company Number: US-ASTRAZENECA-2011SE19214

PATIENT
  Age: 50 Year
  Sex: Male
  Weight: 95.3 kg

DRUGS (4)
  1. SEROQUEL XR [Suspect]
     Indication: PSYCHOTIC DISORDER
     Route: 048
     Dates: start: 20110301
  2. LATUDA [Concomitant]
     Route: 048
  3. CITALOPRAM HYDROBROMIDE [Concomitant]
     Route: 048
  4. HYDROXYZPAN [Concomitant]
     Route: 048

REACTIONS (7)
  - ABNORMAL BEHAVIOUR [None]
  - DRUG DOSE OMISSION [None]
  - INSOMNIA [None]
  - ASOCIAL BEHAVIOUR [None]
  - RESTLESSNESS [None]
  - COMMUNICATION DISORDER [None]
  - PSYCHOMOTOR HYPERACTIVITY [None]
